FAERS Safety Report 9123212 (Version 1)
Quarter: 2013Q1

REPORT INFORMATION
  Report Type: Spontaneous
  Country: FR (occurrence: FR)
  Receive Date: 20130115
  Receipt Date: 20130115
  Transmission Date: 20140127
  Serious: Yes (Other)
  Sender: FDA-Public Use
  Company Number: FR-SANOFI-AVENTIS-2013SA001756

PATIENT
  Age: 84 Year
  Sex: Female

DRUGS (4)
  1. PLAVIX [Suspect]
     Indication: PRODUCT USED FOR UNKNOWN INDICATION
     Route: 048
     Dates: start: 201203, end: 20120722
  2. ZYVOXID [Suspect]
     Indication: INFECTION
     Route: 048
     Dates: start: 20120714, end: 20120717
  3. LODOZ [Concomitant]
  4. KARDEGIC [Concomitant]
     Route: 048
     Dates: start: 201206

REACTIONS (4)
  - Diffuse alopecia [Recovering/Resolving]
  - Epistaxis [Recovered/Resolved]
  - Pancytopenia [Recovered/Resolved]
  - Vomiting [Recovered/Resolved]
